FAERS Safety Report 9209119 (Version 1)
Quarter: 2013Q1

REPORT INFORMATION
  Report Type: Spontaneous
  Country: US (occurrence: None)
  Receive Date: 20120820
  Receipt Date: 20120820
  Transmission Date: 20140127
  Serious: No
  Sender: FDA-Public Use
  Company Number: 1000031034

PATIENT
  Age: 24 Year
  Sex: Female

DRUGS (4)
  1. VIIBRYD (VILAZODONE)(10 MILLIGRAM, TABLETS) [Suspect]
     Indication: DEPRESSION
     Route: 048
     Dates: start: 20120503, end: 20120509
  2. VIIBRYD (VILAZODONE) [Suspect]
     Route: 048
     Dates: start: 20120517, end: 20120615
  3. EFEXOR (VENLAFAXINE HYDROCHLORIDE) (VENLAFAXINE HYDROCHLORIDE) [Concomitant]
  4. ABILIFY (ARIPIRAZOLE) (ARIPIRAZOLE) [Concomitant]

REACTIONS (4)
  - Nightmare [None]
  - Insomnia [None]
  - Hyperhidrosis [None]
  - Weight increased [None]
